FAERS Safety Report 9204823 (Version 1)
Quarter: 2013Q2

REPORT INFORMATION
  Report Type: Report from Study
  Country: US (occurrence: US)
  Receive Date: 20130402
  Receipt Date: 20130402
  Transmission Date: 20140414
  Serious: Yes (Death, Hospitalization)
  Sender: FDA-Public Use
  Company Number: US-009507513-1304USA000194

PATIENT
  Age: 70 Year
  Sex: Male
  Weight: 84 kg

DRUGS (29)
  1. TEMODAR [Suspect]
     Indication: GLIOBLASTOMA
     Dosage: 200 MG/M2, UNK
     Dates: start: 20121030, end: 20121201
  2. STUDY DRUG (UNSPECIFIED) [Suspect]
     Indication: GLIOBLASTOMA
     Dosage: UNK
     Dates: start: 20121009, end: 20121009
  3. TRAZODONE HYDROCHLORIDE [Concomitant]
     Dosage: UNK
     Dates: start: 20120802
  4. LEVETIRACETAM [Concomitant]
     Dosage: UNK
     Dates: start: 20120721
  5. OMEPRAZOLE [Concomitant]
     Dosage: UNK
     Dates: start: 2004
  6. MONTELUKAST [Concomitant]
     Dosage: UNK
     Dates: start: 2006
  7. ENOXAPARIN SODIUM [Concomitant]
     Dosage: UNK
     Dates: start: 20121002, end: 20121228
  8. MICARDIS HCT [Concomitant]
     Dosage: UNK
     Dates: start: 1992
  9. ALBUTEROL [Concomitant]
     Dosage: UNK
     Dates: start: 2008
  10. BUDESONIDE [Concomitant]
     Dosage: UNK
     Dates: start: 2008
  11. ACETAMINOPHEN [Concomitant]
     Dosage: UNK
     Dates: start: 2006
  12. BACTRIM DS [Concomitant]
     Dosage: UNK
     Dates: start: 20120813, end: 20120925
  13. INSULIN [Concomitant]
     Dosage: UNK
     Dates: start: 20121229
  14. PANTOPRAZOLE [Concomitant]
     Dosage: UNK
     Dates: start: 20121229, end: 20130104
  15. ONDANSETRON [Concomitant]
     Dosage: UNK
     Dates: start: 20130102, end: 20130103
  16. DEXAMETHASONE [Concomitant]
     Dosage: UNK
     Dates: start: 20120721
  17. NYSTATIN [Concomitant]
     Dosage: UNK
     Dates: start: 20120813, end: 20120827
  18. ALPRAZOLAM [Concomitant]
     Dosage: UNK
     Dates: start: 20120802
  19. VITAMIN D (UNSPECIFIED) [Concomitant]
     Dosage: ERGOCALCIFEROL
     Dates: start: 20120904
  20. OMEGA-3 [Concomitant]
     Dosage: FISH OIL
     Dates: start: 20120904
  21. CYANOCOBALAMIN [Concomitant]
     Dosage: VITAMIN B 12
     Dates: start: 20120904
  22. ZOLPIDEM TARTRATE [Concomitant]
     Dosage: UNK
     Dates: start: 20120802
  23. SERTRALINE HYDROCHLORIDE [Concomitant]
     Dosage: UNK
     Dates: start: 20121030
  24. VALSARTAN [Concomitant]
     Dosage: UNK
     Dates: start: 20121229
  25. MYLANTA [Concomitant]
     Dosage: UNK
     Dates: start: 20121230, end: 20130104
  26. BISACODYL [Concomitant]
     Dosage: UNK
     Dates: start: 20130101, end: 20130101
  27. DOCUSATE SODIUM [Concomitant]
     Dosage: UNK
     Dates: start: 20121231, end: 20130103
  28. SENNA [Concomitant]
     Dosage: SENNOSIDE A+B
     Dates: start: 20121231, end: 20130103
  29. HYDROCODONE BITARTRATE [Concomitant]
     Dosage: UNK
     Dates: start: 20121229, end: 20130104

REACTIONS (1)
  - Haematoma [Fatal]
